FAERS Safety Report 19242162 (Version 1)
Quarter: 2021Q2

REPORT INFORMATION
  Report Type: Report from Study
  Country: CA (occurrence: CA)
  Receive Date: 20210510
  Receipt Date: 20210510
  Transmission Date: 20210717
  Serious: Yes (Other)
  Sender: FDA-Public Use
  Company Number: CA-EMD SERONO-9236384

PATIENT
  Age: 80 Year
  Sex: Female
  Weight: 72 kg

DRUGS (4)
  1. BAVENCIO [Suspect]
     Active Substance: AVELUMAB
     Route: 042
     Dates: start: 20210430
  2. BENADRYL [Concomitant]
     Active Substance: DIPHENHYDRAMINE HYDROCHLORIDE
     Indication: PRODUCT USED FOR UNKNOWN INDICATION
     Route: 048
  3. TYLENOL [Concomitant]
     Active Substance: ACETAMINOPHEN
     Indication: PRODUCT USED FOR UNKNOWN INDICATION
     Route: 048
  4. BAVENCIO [Suspect]
     Active Substance: AVELUMAB
     Indication: PRODUCT USED FOR UNKNOWN INDICATION
     Route: 042
     Dates: start: 20210416

REACTIONS (7)
  - Haemorrhage urinary tract [Unknown]
  - Fatigue [Unknown]
  - Fear [Unknown]
  - Depression [Unknown]
  - Malaise [Unknown]
  - Blood pressure increased [Unknown]
  - Anxiety [Unknown]

NARRATIVE: CASE EVENT DATE: 202104
